FAERS Safety Report 5971001-7 (Version None)
Quarter: 2008Q4

REPORT INFORMATION
  Report Type: 
  Country: None (occurrence: None)
  Receive Date: 20081128
  Receipt Date: 20081124
  Transmission Date: 20090506
  Serious: Yes (Death, Other)
  Sender: FDA-Public Use
  Company Number: PHEH2008US10544

PATIENT
  Sex: Female

DRUGS (1)
  1. FEMARA [Suspect]
     Dosage: 2.5 MG, QD
     Route: 048
     Dates: end: 20081123

REACTIONS (5)
  - DEATH [None]
  - HIP FRACTURE [None]
  - LOSS OF CONSCIOUSNESS [None]
  - ORAL FUNGAL INFECTION [None]
  - RESPIRATORY ARREST [None]
